FAERS Safety Report 4746815-1 (Version None)
Quarter: 2005Q3

REPORT INFORMATION
  Report Type: 
  Country: None (occurrence: None)
  Receive Date: 20050817
  Receipt Date: 20050331
  Transmission Date: 20060218
  Serious: Yes (Death, Hospitalization)
  Sender: FDA-Public Use
  Company Number: US-ROCHE-400538

PATIENT
  Age: 81 Year
  Sex: Female
  Weight: 91.6 kg

DRUGS (1)
  1. XELODA [Suspect]
     Dosage: 3 TABLETS EVERY AM, 2 TABLETS EVERY PM.
     Route: 048
     Dates: start: 20050114, end: 20050309

REACTIONS (1)
  - HEPATIC FAILURE [None]
